FAERS Safety Report 15675369 (Version 1)
Quarter: 2018Q4

REPORT INFORMATION
  Report Type: Spontaneous
  Country: GB (occurrence: GB)
  Receive Date: 20181130
  Receipt Date: 20181130
  Transmission Date: 20190205
  Serious: Yes (Hospitalization, Other)
  Sender: FDA-Public Use
  Company Number: GB-ALKEM LABORATORIES LIMITED-GB-ALKEM-2016-00713

PATIENT
  Age: 40 Year
  Sex: Male

DRUGS (12)
  1. MYCOPHENOLATE MOFETIL. [Suspect]
     Active Substance: MYCOPHENOLATE MOFETIL
     Indication: IMMUNOSUPPRESSANT DRUG THERAPY
     Dosage: 500 MG, BID
     Route: 065
  2. TACROLIMUS. [Suspect]
     Active Substance: TACROLIMUS
     Dosage: TROUGH TARGET 8-10 NG/ML
     Route: 065
  3. PREDNISONE. [Suspect]
     Active Substance: PREDNISONE
     Dosage: 40 MG, QD
     Route: 065
  4. MYCOPHENOLATE MOFETIL. [Suspect]
     Active Substance: MYCOPHENOLATE MOFETIL
     Dosage: 750 MG, BID
     Route: 065
  5. PREDNISONE. [Suspect]
     Active Substance: PREDNISONE
     Dosage: PREDNISONE INCREASED TO 20 MG, QD, POST-METHYL PREDNISONE PULSE
     Route: 065
  6. IMMUNGLOBULIN [Suspect]
     Active Substance: HUMAN IMMUNOGLOBULIN G
     Indication: IMMUNOSUPPRESSANT DRUG THERAPY
     Dosage: IV IMMUNOGLOBULIN 2 MG/KG IN TWO DIVIDED DOSES
     Route: 042
  7. PREDNISONE. [Suspect]
     Active Substance: PREDNISONE
     Indication: IMMUNOSUPPRESSANT DRUG THERAPY
     Dosage: 15 MG, QD
     Route: 065
  8. THYMOGLOBULIN [Suspect]
     Active Substance: LAPINE T-LYMPHOCYTE IMMUNE GLOBULIN
     Dosage: TOTAL DOSE: 700 MG
  9. MEPREDNISONE [Suspect]
     Active Substance: MEPREDNISONE
     Indication: IMMUNOSUPPRESSANT DRUG THERAPY
     Dosage: 500 MG, 3 TOTAL, INTRAVENOUS PLUSE
     Route: 042
  10. TACROLIMUS. [Suspect]
     Active Substance: TACROLIMUS
     Indication: IMMUNOSUPPRESSANT DRUG THERAPY
     Dosage: TARGET TROUGH LEVEL 10-12 NG/ML
     Route: 065
  11. THYMOGLOBULIN [Suspect]
     Active Substance: LAPINE T-LYMPHOCYTE IMMUNE GLOBULIN
     Indication: IMMUNOSUPPRESSANT DRUG THERAPY
     Dosage: TOTAL DOSE: 550 MG
     Route: 065
  12. MYCOPHENOLATE MOFETIL. [Suspect]
     Active Substance: MYCOPHENOLATE MOFETIL
     Dosage: 250 MG, BID
     Route: 065

REACTIONS (2)
  - Mycobacterium chelonae infection [Recovering/Resolving]
  - Transplant rejection [Recovering/Resolving]
